FAERS Safety Report 8973493 (Version 1)
Quarter: 2012Q4

REPORT INFORMATION
  Report Type: 
  Country: US (occurrence: US)
  Receive Date: 20121218
  Receipt Date: 20121218
  Transmission Date: 20130627
  Serious: Yes (Other)
  Sender: FDA-Public Use
  Company Number: US-BRISTOL-MYERS SQUIBB COMPANY-16825580

PATIENT
  Age: 22 Year
  Sex: Male

DRUGS (3)
  1. ABILIFY TABS [Suspect]
     Indication: BIPOLAR DISORDER
     Dosage: Prescription#230058
     Route: 048
  2. ABILIFY TABS [Suspect]
     Indication: SCHIZOPHRENIA
     Dosage: Prescription#230058
     Route: 048
  3. ABILIFY TABS [Suspect]
     Indication: PSYCHOTIC DISORDER
     Dosage: Prescription#230058
     Route: 048

REACTIONS (2)
  - Drug ineffective [Unknown]
  - Suicide attempt [Unknown]
